FAERS Safety Report 19353407 (Version 1)
Quarter: 2021Q2

REPORT INFORMATION
  Report Type: Report from Study
  Country: None (occurrence: US)
  Receive Date: 20210601
  Receipt Date: 20210601
  Transmission Date: 20210717
  Serious: Yes (Hospitalization, Other)
  Sender: FDA-Public Use
  Company Number: US-ABBVIE-21K-163-3926387-00

PATIENT
  Age: 57 Year
  Sex: Male

DRUGS (1)
  1. CREON [Suspect]
     Active Substance: PANCRELIPASE AMYLASE\PANCRELIPASE LIPASE\PANCRELIPASE PROTEASE
     Indication: PRODUCT USED FOR UNKNOWN INDICATION
     Route: 048

REACTIONS (7)
  - Diarrhoea [Unknown]
  - Cholecystectomy [Unknown]
  - Benign prostatic hyperplasia [Unknown]
  - Shoulder operation [Unknown]
  - Hospitalisation [Unknown]
  - Pancreatitis chronic [Unknown]
  - Spinal operation [Unknown]

NARRATIVE: CASE EVENT DATE: 20110101
